FAERS Safety Report 22320211 (Version 1)
Quarter: 2023Q2

REPORT INFORMATION
  Report Type: Spontaneous
  Country: US (occurrence: None)
  Receive Date: 20230512
  Receipt Date: 20230512
  Transmission Date: 20230722
  Serious: No
  Sender: FDA-Public Use
  Company Number: None

PATIENT
  Sex: Male

DRUGS (10)
  1. GENGRAF [Suspect]
     Active Substance: CYCLOSPORINE
     Indication: Renal transplant
     Dosage: FREQUENCY : AS DIRECTED;?
     Route: 048
     Dates: start: 20190206
  2. ALLOPURINOL [Concomitant]
     Active Substance: ALLOPURINOL
  3. ATORVASTATIN [Concomitant]
     Active Substance: ATORVASTATIN
  4. FUROSEMIDE [Concomitant]
     Active Substance: FUROSEMIDE
  5. LISINOPRIL [Concomitant]
     Active Substance: LISINOPRIL
  6. METOPROLOL TARTRATE [Concomitant]
     Active Substance: METOPROLOL TARTRATE
  7. NIFEDIPINE [Concomitant]
     Active Substance: NIFEDIPINE
  8. OMEPRAZOLE [Concomitant]
     Active Substance: OMEPRAZOLE
  9. PREDNISONE [Concomitant]
     Active Substance: PREDNISONE
  10. SILDENAFIL [Concomitant]
     Active Substance: SILDENAFIL

REACTIONS (1)
  - Pneumonia [None]
